FAERS Safety Report 10916061 (Version 1)
Quarter: 2015Q1

REPORT INFORMATION
  Report Type: Spontaneous
  Country: CA (occurrence: CA)
  Receive Date: 20150316
  Receipt Date: 20150316
  Transmission Date: 20150721
  Serious: Yes (Other)
  Sender: FDA-Public Use
  Company Number: CA-BEH-2015049625

PATIENT
  Age: 40 Year
  Sex: Female

DRUGS (6)
  1. PRIVIGEN [Suspect]
     Active Substance: HUMAN IMMUNOGLOBULIN G
     Dosage: 20 G; FRACTION ADMINISTERED: 4/4 (200 ML)
     Route: 042
     Dates: start: 20141125, end: 20141125
  2. PRIVIGEN [Suspect]
     Active Substance: HUMAN IMMUNOGLOBULIN G
     Indication: IMMUNE THROMBOCYTOPENIC PURPURA
     Dosage: 5G. FRACTION ADMINISTERED: 4/4 (50 ML)
     Route: 042
     Dates: start: 20141124, end: 20141124
  3. PRIVIGEN [Suspect]
     Active Substance: HUMAN IMMUNOGLOBULIN G
     Dosage: FRACTION ADMINISTERED: 4/4 (50 ML), 5G
     Route: 042
     Dates: start: 20141125, end: 20141125
  4. PRIVIGEN [Suspect]
     Active Substance: HUMAN IMMUNOGLOBULIN G
     Dosage: FRACTION ADMINISTERED: 4/4 (200 ML), 20G
     Route: 042
     Dates: start: 20141124, end: 20141124
  5. PRIVIGEN [Suspect]
     Active Substance: HUMAN IMMUNOGLOBULIN G
     Dosage: FRACTION ADMINISTERED: 4/4 (100 ML).10 G
     Route: 042
     Dates: start: 20141124, end: 20141124
  6. PRIVIGEN [Suspect]
     Active Substance: HUMAN IMMUNOGLOBULIN G
     Dosage: 10G;FRACTION ADMINISTERED: 4/4 (100 ML)
     Route: 042
     Dates: start: 20141125, end: 20141125

REACTIONS (6)
  - Meningitis aseptic [Unknown]
  - Headache [Recovered/Resolved]
  - Headache [Recovered/Resolved]
  - Meningitis viral [Unknown]
  - Headache [Unknown]
  - Hypertension [Unknown]

NARRATIVE: CASE EVENT DATE: 20141124
